FAERS Safety Report 11054547 (Version 1)
Quarter: 2015Q2

REPORT INFORMATION
  Report Type: Spontaneous
  Country: SE (occurrence: SE)
  Receive Date: 20150422
  Receipt Date: 20150422
  Transmission Date: 20150821
  Serious: Yes (Other)
  Sender: FDA-Public Use
  Company Number: SE-NOVOPROD-446152

PATIENT
  Age: 50 Year
  Sex: Female

DRUGS (1)
  1. TRISEKVENS [Suspect]
     Active Substance: ETHINYL ESTRADIOL\NORETHINDRONE
     Indication: MENOPAUSAL DISORDER
     Dosage: UNK
     Route: 065
     Dates: end: 200603

REACTIONS (4)
  - Pain [Unknown]
  - Myocardial infarction [Unknown]
  - Breast cancer [Unknown]
  - Weight increased [Unknown]

NARRATIVE: CASE EVENT DATE: 2006
